FAERS Safety Report 13980322 (Version 2)
Quarter: 2017Q4

REPORT INFORMATION
  Report Type: Report from Study
  Country: None (occurrence: AR)
  Receive Date: 20170917
  Receipt Date: 20171104
  Transmission Date: 20180321
  Serious: Yes (Other)
  Sender: FDA-Public Use
  Company Number: AR-ABBVIE-17K-007-2104076-00

PATIENT
  Age: 14 Year
  Sex: Male

DRUGS (2)
  1. HUMIRA [Suspect]
     Active Substance: ADALIMUMAB
     Indication: JUVENILE IDIOPATHIC ARTHRITIS
     Route: 058
     Dates: start: 20151023, end: 201707
  2. METHOTREXATE. [Concomitant]
     Active Substance: METHOTREXATE
     Indication: JUVENILE IDIOPATHIC ARTHRITIS
     Dates: start: 20140130, end: 201707

REACTIONS (2)
  - Histoplasmosis [Unknown]
  - Granuloma [Recovering/Resolving]

NARRATIVE: CASE EVENT DATE: 201707
